FAERS Safety Report 10503801 (Version 1)
Quarter: 2014Q4

REPORT INFORMATION
  Report Type: Spontaneous
  Country: US (occurrence: None)
  Receive Date: 20141007
  Receipt Date: 20141007
  Transmission Date: 20150528
  Serious: Yes (Life-Threatening)
  Sender: FDA-Public Use
  Company Number: None

PATIENT
  Age: 19 Year
  Sex: Male
  Weight: 52.62 kg

DRUGS (1)
  1. HUMALOG KWIKPEN [Suspect]
     Active Substance: INSULIN LISPRO
     Indication: TYPE 1 DIABETES MELLITUS
     Dosage: 1 UNIT OF INSULIN PER 10 CARBS, AS NEEDED, INJECTED INTO SKIN IN DIFFERENT LOCATION
     Dates: start: 20140707, end: 20140718

REACTIONS (5)
  - Overdose [None]
  - Tremor [None]
  - Device malfunction [None]
  - Delirium [None]
  - Hyperhidrosis [None]

NARRATIVE: CASE EVENT DATE: 20140716
